FAERS Safety Report 4974828-3 (Version None)
Quarter: 2006Q1

REPORT INFORMATION
  Report Type: 
  Country: None (occurrence: None)
  Receive Date: 20060216
  Receipt Date: 20050527
  Transmission Date: 20060701
  Serious: Yes (Hospitalization)
  Sender: FDA-Public Use
  Company Number: 200505IM000209

PATIENT
  Age: 66 Year
  Sex: Female
  Weight: 75 kg

DRUGS (5)
  1. BLINDED THERAPY (INTERFERON GAMMA-1B) [Suspect]
     Indication: IDIOPATHIC PULMONARY FIBROSIS
     Dosage: 200 UG, TIW, SUBCUTANEOUS
     Route: 058
     Dates: start: 20050113, end: 20050530
  2. FOSAMAX [Concomitant]
  3. CALCIUM/VITAMIN D [Concomitant]
  4. PREDNISONE TAB [Concomitant]
  5. PARACODIN DROPS [Concomitant]

REACTIONS (5)
  - IDIOPATHIC PULMONARY FIBROSIS [None]
  - PNEUMONIA [None]
  - PULMONARY EMBOLISM [None]
  - RIGHT VENTRICULAR FAILURE [None]
  - UROSEPSIS [None]
